FAERS Safety Report 8555750-2 (Version None)
Quarter: 2012Q3

REPORT INFORMATION
  Report Type: 
  Country: None (occurrence: None)
  Receive Date: 20120801
  Receipt Date: 20120727
  Transmission Date: 20120928
  Serious: Yes (Other)
  Sender: FDA-Public Use
  Company Number: ES-GE HEALTHCARE MEDICAL DIAGNOSTICS-VISP-NO-1207S-0319

PATIENT
  Age: 30 Year
  Sex: Female

DRUGS (1)
  1. VISIPAQUE [Suspect]
     Indication: PRODUCT USED FOR UNKNOWN INDICATION
     Route: 065
     Dates: start: 20120701, end: 20120701

REACTIONS (6)
  - EYELID OEDEMA [None]
  - PRURITUS [None]
  - PAPULE [None]
  - LARYNGEAL OEDEMA [None]
  - COUGH [None]
  - DYSPNOEA [None]
